FAERS Safety Report 8838921 (Version 1)
Quarter: 2012Q4

REPORT INFORMATION
  Report Type: Spontaneous
  Country: US (occurrence: None)
  Receive Date: 20121011
  Receipt Date: 20121011
  Transmission Date: 20130627
  Serious: Yes (Other)
  Sender: FDA-Public Use
  Company Number: None

PATIENT
  Age: 74 Year
  Sex: Female

DRUGS (1)
  1. FORTEO [Suspect]
     Dosage: 20MCG DAILY SUBCUTANEOUS
     Route: 058
     Dates: start: 20120206, end: 20121009

REACTIONS (4)
  - Depression [None]
  - Arthralgia [None]
  - Tooth infection [None]
  - Bone loss [None]
